FAERS Safety Report 6099931-9 (Version None)
Quarter: 2009Q1

REPORT INFORMATION
  Report Type: 
  Country: None (occurrence: None)
  Receive Date: 20090226
  Receipt Date: 20090223
  Transmission Date: 20090719
  Serious: Yes (Death)
  Sender: FDA-Public Use
  Company Number: GXKR2009DE02204

PATIENT
  Age: 31 Year
  Sex: Male
  Weight: 78 kg

DRUGS (7)
  1. BLEOMYCIN (NGX) (BLEOMYCIN SULFATE) UNKNOWN [Suspect]
     Indication: HODGKIN'S DISEASE
     Dosage: 10 MG/M2, INJECTIONS NOS
     Dates: start: 20090127, end: 20090127
  2. VINCRISTINE [Suspect]
     Indication: HODGKIN'S DISEASE
     Dosage: 2 MG
     Dates: start: 20090127, end: 20090127
  3. PREDNISONE [Suspect]
     Indication: HODGKIN'S DISEASE
     Dosage: 40 MG/M2
     Dates: start: 20090120
  4. CYCLOPHOSPHAMIDE [Suspect]
     Indication: HODGKIN'S DISEASE
     Dosage: 1200 MG/M2
     Dates: start: 20090120, end: 20090120
  5. ETOPOPHOS PRESERVATIVE FREE [Suspect]
     Indication: HODGKIN'S DISEASE
     Dosage: 200 MG/M2
     Dates: start: 20090120, end: 20090122
  6. ADRIBLASTIN (DOXORUBICIN HYDROCHLORIDE) [Suspect]
     Indication: HODGKIN'S DISEASE
     Dosage: 35 MG/M2
     Dates: start: 20090120, end: 20090120
  7. NATULAN (PROCARBAZINE HYDROCHLORIDE) [Suspect]
     Dosage: 100 MG/M2
     Dates: start: 20090120, end: 20090126

REACTIONS (3)
  - DYSPNOEA [None]
  - PNEUMONIA PNEUMOCOCCAL [None]
  - SEPTIC SHOCK [None]
